FAERS Safety Report 6435774-1 (Version None)
Quarter: 2009Q4

REPORT INFORMATION
  Report Type: 
  Country: None (occurrence: None)
  Receive Date: 20091111
  Receipt Date: 20091103
  Transmission Date: 20100525
  Serious: Yes (Other)
  Sender: FDA-Public Use
  Company Number: US-ASTRAZENECA-2009SE15669

PATIENT
  Age: 56 Year
  Sex: Male
  Weight: 83 kg

DRUGS (7)
  1. SEROQUEL [Suspect]
     Indication: SCHIZOPHRENIA
     Route: 048
     Dates: start: 20030101, end: 20080101
  2. ABILIFY [Concomitant]
  3. RISPERDAL [Concomitant]
  4. STELAZINE [Concomitant]
  5. THORAZINE [Concomitant]
  6. ZYPREXA [Concomitant]
  7. SYMBYAX [Concomitant]

REACTIONS (4)
  - BLOOD CHOLESTEROL INCREASED [None]
  - HYPERLIPIDAEMIA [None]
  - PERICARDIAL DISEASE [None]
  - TYPE 2 DIABETES MELLITUS [None]
